FAERS Safety Report 15568491 (Version 1)
Quarter: 2018Q4

REPORT INFORMATION
  Report Type: Spontaneous
  Country: GB (occurrence: GB)
  Receive Date: 20181031
  Receipt Date: 20181031
  Transmission Date: 20190205
  Serious: Yes (Other)
  Sender: FDA-Public Use
  Company Number: GB-AUROBINDO-AUR-APL-2011-05739

PATIENT
  Age: 49 Year
  Sex: Male
  Weight: 100 kg

DRUGS (9)
  1. ZOPICLONE [Concomitant]
     Active Substance: ZOPICLONE
     Indication: SLEEP DISORDER
     Dosage: 7.5 MG,UNK, LONG TERM THERAPY, ALTERNATIVE NIGHTS
     Route: 048
  2. DIAZEPAM. [Concomitant]
     Active Substance: DIAZEPAM
     Indication: DRUG DEPENDENCE
     Dosage: 10 MG,3 TIMES A DAY,
     Route: 048
  3. FLUOXETINE [Concomitant]
     Active Substance: FLUOXETINE HYDROCHLORIDE
     Indication: OBSESSIVE-COMPULSIVE DISORDER
  4. DIAZEPAM. [Concomitant]
     Active Substance: DIAZEPAM
     Dosage: LONG TERM THERAPY
     Route: 048
  5. RISPERIDONE FILM-COATED TABLETS 1 MG [Suspect]
     Active Substance: RISPERIDONE
     Dosage: 1 MG,TWO TIMES A DAY,
     Route: 048
     Dates: start: 20110901, end: 20110930
  6. PROPRANOLOL [Concomitant]
     Active Substance: PROPRANOLOL HYDROCHLORIDE
     Indication: ANXIETY
     Dosage: 40 MG,ONCE A DAY, LONG TERM THERAPY
     Route: 048
  7. FLUOXETINE [Concomitant]
     Active Substance: FLUOXETINE HYDROCHLORIDE
     Indication: DEPRESSION
     Dosage: 60 MG,ONCE A DAY, LONG TERM THERAPY
     Route: 048
  8. RISPERIDONE FILM-COATED TABLETS 1 MG [Suspect]
     Active Substance: RISPERIDONE
     Indication: AFFECTIVE DISORDER
     Dosage: 1 MG,TWO TIMES A DAY,
     Route: 048
     Dates: start: 20110901, end: 20110930
  9. BUSPIRONE [Concomitant]
     Active Substance: BUSPIRONE HYDROCHLORIDE
     Indication: ANXIETY
     Dosage: 10 MG,ONCE A DAY,
     Route: 048

REACTIONS (1)
  - Nocturia [Recovered/Resolved]

NARRATIVE: CASE EVENT DATE: 20110902
